FAERS Safety Report 9617802 (Version 1)
Quarter: 2013Q4

REPORT INFORMATION
  Report Type: Spontaneous
  Country: US (occurrence: US)
  Receive Date: 20131011
  Receipt Date: 20131011
  Transmission Date: 20140711
  Serious: Yes (Hospitalization)
  Sender: FDA-Public Use
  Company Number: US-MERCK-1310USA003086

PATIENT
  Age: 62 Year
  Sex: Female
  Weight: 61.68 kg

DRUGS (5)
  1. VORINOSTAT [Suspect]
     Dosage: 300 MG, DAYS 1-7 AND 15-21
     Route: 048
  2. CARFILZOMIB [Suspect]
     Indication: PLASMA CELL MYELOMA
     Dosage: 20 MG/M2, DAYS 1,2,8,9,15 AND 16
     Route: 042
  3. LENALIDOMIDE [Concomitant]
     Dosage: 25 MG, DAYS 1-21 OF A 28 DAY CYCLE
     Route: 048
  4. DEXAMETHASONE [Concomitant]
     Dosage: 40 MG, Q WEEK, IV/PO
     Route: 042
  5. DEXAMETHASONE [Concomitant]

REACTIONS (3)
  - Cough [Unknown]
  - Dyspnoea [Unknown]
  - Pyrexia [Unknown]
